FAERS Safety Report 14149114 (Version 17)
Quarter: 2018Q4

REPORT INFORMATION
  Report Type: Spontaneous
  Country: US (occurrence: US)
  Receive Date: 20171101
  Receipt Date: 20181003
  Transmission Date: 20190204
  Serious: Yes (Hospitalization, Disabling, Other)
  Sender: FDA-Public Use
  Company Number: US-PFIZER INC-2017466915

PATIENT
  Age: 58 Year
  Sex: Male

DRUGS (43)
  1. HCTZ [Concomitant]
     Active Substance: HYDROCHLOROTHIAZIDE
     Dosage: 25 MG, DAILY (AM)
     Route: 048
  2. CEFADROXIL. [Concomitant]
     Active Substance: CEFADROXIL
     Dosage: 500 MG, 2X/DAY
     Route: 048
  3. ADVAIR HFA [Concomitant]
     Active Substance: FLUTICASONE PROPIONATE\SALMETEROL XINAFOATE
     Indication: DYSPNOEA
     Dosage: UNK, AS DIRECTED
  4. ZOCOR [Concomitant]
     Active Substance: SIMVASTATIN
     Dosage: UNK
  5. AMRIX [Concomitant]
     Active Substance: CYCLOBENZAPRINE HYDROCHLORIDE
     Dosage: UNK, DAILY
     Route: 048
  6. CALCIUM [Concomitant]
     Active Substance: CALCIUM
     Dosage: 0.5 DF (HALF A PILL), 2X/DAY
     Route: 048
     Dates: end: 20120523
  7. NEURONTIN [Concomitant]
     Active Substance: GABAPENTIN
     Dosage: 800 MG, UNK (FIVE TIMES A DAY)
  8. CLONIDINE HCL [Concomitant]
     Active Substance: CLONIDINE HYDROCHLORIDE
     Dosage: 0.3 MG, 2X/DAY
     Route: 048
  9. METFORMIN HCL [Concomitant]
     Active Substance: METFORMIN HYDROCHLORIDE
     Dosage: 500 MG, 3X/DAY
     Route: 048
     Dates: end: 20120523
  10. R-ALPHA LIPOIC ACID [Concomitant]
     Dosage: 100 MG, 2X/DAY
     Route: 048
     Dates: end: 20120513
  11. OXYCODONE HYDROCHLORIDE. [Concomitant]
     Active Substance: OXYCODONE HYDROCHLORIDE
     Dosage: 30 MG, 4X/DAY
     Route: 048
     Dates: end: 20120523
  12. PROVENTIL HFA [Concomitant]
     Active Substance: ALBUTEROL SULFATE
     Indication: ASTHMA
     Dosage: 2 DF, UNK
     Route: 045
     Dates: end: 20120523
  13. METFORMIN [Concomitant]
     Active Substance: METFORMIN HYDROCHLORIDE
     Indication: DIABETES MELLITUS
     Dosage: 500 MG, 2X/DAY (1 PILL TWICE A DAY)
     Route: 048
  14. ROCALTROL [Concomitant]
     Active Substance: CALCITRIOL
     Dosage: UNK UNK, 2X/DAY (0.5 MCG)
     Route: 048
  15. MUPIROCIN. [Concomitant]
     Active Substance: MUPIROCIN
     Dosage: ONE APPLICATION
     Route: 045
  16. DULOXETINE. [Concomitant]
     Active Substance: DULOXETINE
     Dosage: 60 MG, DAILY
  17. ASPRIN [Concomitant]
     Active Substance: ASPIRIN
  18. ALLOPURINOL. [Concomitant]
     Active Substance: ALLOPURINOL
     Dosage: 300 MG, 1X/DAY
     Route: 048
  19. NEXIUM [Concomitant]
     Active Substance: ESOMEPRAZOLE MAGNESIUM
     Dosage: 40 MG, DAILY (PRN)
     Route: 048
  20. ZYRTEC [Concomitant]
     Active Substance: CETIRIZINE HYDROCHLORIDE
     Dosage: 10 MG, DAILY (PRN)
     Route: 048
  21. CALCIUM [Concomitant]
     Active Substance: CALCIUM
     Dosage: 1250 MG, 2X/DAY (1 PILL TWICE A DAY)
     Route: 048
  22. CATAPRES [Concomitant]
     Active Substance: CLONIDINE HYDROCHLORIDE
     Dosage: 0.3 MG, 2X/DAY
     Route: 048
  23. CYMBALTA [Concomitant]
     Active Substance: DULOXETINE HYDROCHLORIDE
     Dosage: 60 MG, 1X/DAY
     Route: 048
  24. PREVACID [Concomitant]
     Active Substance: LANSOPRAZOLE
     Dosage: 40 MG, 1X/DAY
  25. LOZOL [Concomitant]
     Active Substance: INDAPAMIDE
     Dosage: 1.25 MG, DAILY
  26. CALCITRIOL. [Concomitant]
     Active Substance: CALCITRIOL
     Indication: HYPOCALCAEMIA
     Dosage: 0.5 UG, 2X/DAY (1 PILL TWICE A DAY)
     Route: 048
     Dates: end: 20120523
  27. HYDROCHLOROTHIAZIDE. [Concomitant]
     Active Substance: HYDROCHLOROTHIAZIDE
     Dosage: 25 MG, 1X/DAY
  28. TAMSULOSIN [Concomitant]
     Active Substance: TAMSULOSIN
     Dosage: 0.4 MG, DAILY (EXT RELEASE 24 HR, 1 PILL DAILY)
     Route: 048
  29. ASA [Concomitant]
     Active Substance: ASPIRIN
     Dosage: 325 MG, DAILY (PRN)
     Route: 048
  30. QUINAPRIL. [Concomitant]
     Active Substance: QUINAPRIL
     Dosage: 40 MG, DAILY
     Route: 048
  31. ATENOLOL. [Concomitant]
     Active Substance: ATENOLOL
     Dosage: 25 MG, QHS (AT BEDTIME)
     Route: 048
  32. LIPITOR [Suspect]
     Active Substance: ATORVASTATIN CALCIUM
     Indication: BLOOD CHOLESTEROL INCREASED
     Dosage: 40 MG, 1X/DAY (1 PILL DAILY)
     Route: 048
     Dates: start: 2005, end: 2012
  33. ACCUPRIL [Concomitant]
     Active Substance: QUINAPRIL HYDROCHLORIDE
     Dosage: 40 MG, 1X/DAY
     Route: 048
  34. SINGULAIR [Concomitant]
     Active Substance: MONTELUKAST SODIUM
     Dosage: 10 MG, DAILY
     Route: 048
     Dates: end: 20120523
  35. ATORVASTATIN CALCIUM. [Concomitant]
     Active Substance: ATORVASTATIN CALCIUM
     Dosage: 40 MG, AT BEDTIME
     Route: 048
     Dates: end: 20120522
  36. CALCITRIOL. [Concomitant]
     Active Substance: CALCITRIOL
     Indication: HYPOPARATHYROIDISM
     Dosage: 0.25 UG, UNK
     Route: 048
  37. PROVENTIL HFA [Concomitant]
     Active Substance: ALBUTEROL SULFATE
     Dosage: UNK, AS NEEDED (90 MCG/ACTUATION HFA AEROSOL INHALER)
  38. ALBUTEROL SULFATE. [Concomitant]
     Active Substance: ALBUTEROL SULFATE
     Indication: ASTHMA
     Dosage: 17 G, AS NEEDED (AS DIRECTED)
     Route: 055
  39. QUINAPRIL. [Concomitant]
     Active Substance: QUINAPRIL
     Indication: BLOOD PRESSURE ABNORMAL
     Dosage: 40 MG, DAILY (1 PILL DAILY)
     Route: 048
  40. ASPIRIN. [Concomitant]
     Active Substance: ASPIRIN
     Dosage: UNK
  41. COMBIVENT [Concomitant]
     Active Substance: ALBUTEROL SULFATE\IPRATROPIUM BROMIDE
     Dosage: UNK
  42. ZETIA [Concomitant]
     Active Substance: EZETIMIBE
     Dosage: UNK
  43. OXYCODONE [Concomitant]
     Active Substance: OXYCODONE
     Dosage: 20 MG, 4X/DAY (1 PILL 4 TIMES A DAY)
     Route: 048

REACTIONS (32)
  - Hypoaesthesia [Unknown]
  - Retinopathy [Unknown]
  - Loss of consciousness [Unknown]
  - Meniscus injury [Unknown]
  - Blood glucose increased [Unknown]
  - Spondylolisthesis [Unknown]
  - Sciatica [Recovered/Resolved]
  - Mononeuritis [Unknown]
  - Radiculopathy [Unknown]
  - Diabetes mellitus [Unknown]
  - Pain [Unknown]
  - Retinal vein occlusion [Recovering/Resolving]
  - Peroneal nerve palsy [Unknown]
  - Asthma [Unknown]
  - Essential hypertension [Unknown]
  - Constipation [Unknown]
  - Chronic obstructive pulmonary disease [Unknown]
  - Hyperhidrosis [Recovering/Resolving]
  - Lumbar spinal stenosis [Unknown]
  - Urinary retention postoperative [Recovered/Resolved]
  - Gait disturbance [Recovered/Resolved]
  - Disease recurrence [Unknown]
  - Pneumonia [Unknown]
  - Ocular vascular disorder [Unknown]
  - Abdominal discomfort [Unknown]
  - Visual impairment [Unknown]
  - Balance disorder [Unknown]
  - Vision blurred [Unknown]
  - Urinary tract infection [Unknown]
  - Spinal osteoarthritis [Unknown]
  - Neuropathy peripheral [Unknown]
  - Retinal vein occlusion [Recovering/Resolving]

NARRATIVE: CASE EVENT DATE: 2007
